FAERS Safety Report 19941848 (Version 4)
Quarter: 2022Q2

REPORT INFORMATION
  Report Type: Report from Study
  Country: GR (occurrence: GR)
  Receive Date: 20211011
  Receipt Date: 20220621
  Transmission Date: 20220721
  Serious: Yes (Life-Threatening, Hospitalization)
  Sender: FDA-Public Use
  Company Number: GR-EXELIXIS-XL18421042100

PATIENT

DRUGS (9)
  1. CABOZANTINIB [Suspect]
     Active Substance: CABOZANTINIB
     Indication: Non-small cell lung cancer
     Dosage: 40 MG, QD
     Route: 048
     Dates: start: 20210506
  2. ATEZOLIZUMAB [Suspect]
     Active Substance: ATEZOLIZUMAB
     Indication: Non-small cell lung cancer
     Dosage: 1200 MG, Q3WEEKS
     Route: 042
     Dates: start: 20210506, end: 20210629
  3. JANUMET [Concomitant]
     Active Substance: METFORMIN HYDROCHLORIDE\SITAGLIPTIN PHOSPHATE
     Indication: Type 2 diabetes mellitus
     Dosage: 850 MG, BID
     Route: 048
     Dates: start: 20000501
  4. AMOXICILLIN\CLAVULANIC ACID [Concomitant]
     Active Substance: AMOXICILLIN\CLAVULANIC ACID
     Indication: Pyrexia
     Dosage: 1000 MG
     Route: 048
     Dates: start: 20210615, end: 20210625
  5. CIPROFLOXACIN [Concomitant]
     Active Substance: CIPROFLOXACIN
     Indication: Pyrexia
     Dosage: 500 MG, BID
     Route: 048
     Dates: start: 20210617, end: 20210625
  6. TRAMADOL [Concomitant]
     Active Substance: TRAMADOL
     Indication: Pleuritic pain
     Dosage: 375 MG, BID
     Route: 048
     Dates: start: 20210622
  7. POTASSIUM [Concomitant]
     Active Substance: POTASSIUM
     Indication: Hypokalaemia
     Dosage: 10 %
     Route: 042
     Dates: start: 20210622, end: 20210622
  8. ACETAMINOPHEN [Concomitant]
     Active Substance: ACETAMINOPHEN
     Indication: Pleuritic pain
     Dosage: 375 MG, BID
     Route: 048
     Dates: start: 20210622
  9. Uresan [Concomitant]

REACTIONS (1)
  - Myocardial infarction [Recovered/Resolved]

NARRATIVE: CASE EVENT DATE: 20210629
